FAERS Safety Report 24143616 (Version 4)
Quarter: 2024Q4

REPORT INFORMATION
  Report Type: Report from Study
  Country: US (occurrence: US)
  Receive Date: 20240727
  Receipt Date: 20241212
  Transmission Date: 20250114
  Serious: Yes (Hospitalization, Other)
  Sender: ABBVIE
  Company Number: US-ABBVIE-5852126

PATIENT
  Age: 72 Year
  Sex: Female
  Weight: 68 kg

DRUGS (1)
  1. CREON [Suspect]
     Active Substance: PANCRELIPASE AMYLASE\PANCRELIPASE LIPASE\PANCRELIPASE PROTEASE
     Indication: Product used for unknown indication
     Dosage: 36000 UNITS / MEAL TIME
     Route: 048

REACTIONS (16)
  - Loss of consciousness [Recovered/Resolved]
  - Blood glucose decreased [Unknown]
  - Urinary tract infection [Unknown]
  - Hernia [Unknown]
  - Constipation [Unknown]
  - Product lot number issue [Not Recovered/Not Resolved]
  - Blood glucose increased [Unknown]
  - Blood lactic acid increased [Unknown]
  - Blood chloride increased [Unknown]
  - Haemoglobin decreased [Unknown]
  - Haematocrit increased [Unknown]
  - White blood cell count increased [Unknown]
  - Red blood cell count increased [Unknown]
  - Urinary squamous epithelial cells increased [Unknown]
  - Red blood cell count decreased [Unknown]
  - Blood potassium decreased [Unknown]

NARRATIVE: CASE EVENT DATE: 20231225
